FAERS Safety Report 4342754-9 (Version None)
Quarter: 2004Q2

REPORT INFORMATION
  Report Type: 
  Country: None (occurrence: None)
  Receive Date: 20040409
  Receipt Date: 20030527
  Transmission Date: 20050107
  Serious: Yes (Hospitalization)
  Sender: FDA-Public Use
  Company Number: 03P-163-0220498-00

PATIENT
  Age: 45 Year
  Sex: Female
  Weight: 65.7716 kg

DRUGS (2)
  1. DEPAKOTE [Suspect]
     Indication: BIPOLAR DISORDER
     Dosage: 2 IN 1 D, PER ORAL
     Route: 048
     Dates: start: 19850101, end: 20030201
  2. FLUOXETINE HCL [Concomitant]

REACTIONS (10)
  - ALOPECIA [None]
  - APTYALISM [None]
  - HEART RATE INCREASED [None]
  - MASS [None]
  - OVARIAN CYST [None]
  - PAIN IN EXTREMITY [None]
  - PANIC ATTACK [None]
  - SUICIDAL IDEATION [None]
  - TOOTH LOSS [None]
  - WEIGHT INCREASED [None]
